FAERS Safety Report 6048976-3 (Version None)
Quarter: 2009Q1

REPORT INFORMATION
  Report Type: 
  Country: None (occurrence: None)
  Receive Date: 20090123
  Receipt Date: 20090116
  Transmission Date: 20090719
  Serious: Yes (Other)
  Sender: FDA-Public Use
  Company Number: A0764897A

PATIENT
  Sex: Male
  Weight: 122.7 kg

DRUGS (7)
  1. AVANDIA [Suspect]
     Dosage: 4MG TWICE PER DAY
     Route: 048
     Dates: start: 20000531, end: 20070806
  2. CARVEDILOL [Concomitant]
     Dates: start: 19840101, end: 20070101
  3. ASPIRIN [Concomitant]
  4. SIMVASTATIN [Concomitant]
  5. TERAZOSIN HCL [Concomitant]
  6. LISINOPRIL [Concomitant]
  7. FUROSEMIDE [Concomitant]

REACTIONS (2)
  - CARDIAC FAILURE CONGESTIVE [None]
  - MYOCARDIAL INFARCTION [None]
